FAERS Safety Report 22069703 (Version 1)
Quarter: 2023Q1

REPORT INFORMATION
  Report Type: Spontaneous
  Country: US (occurrence: US)
  Receive Date: 20230307
  Receipt Date: 20230307
  Transmission Date: 20230417
  Serious: No
  Sender: FDA-Public Use
  Company Number: US-AMNEAL PHARMACEUTICALS-2022-AMRX-00102

PATIENT
  Sex: Male

DRUGS (5)
  1. RYTARY [Suspect]
     Active Substance: CARBIDOPA\LEVODOPA
     Indication: Parkinson^s disease
     Dosage: 48.75/195MG, 11 CAPSULES, DAILY, 3 CAPS AT 6AM, 12PM AND 6PM AND 2 CAPS AT 12AM
     Route: 048
  2. RYTARY [Suspect]
     Active Substance: CARBIDOPA\LEVODOPA
     Dosage: 61.25/245MG, 3 CAPSULES 5 TIMES A DAY (AT 6AM, NOON, 6PM, 8PM AND MIDNIGHT).
     Route: 048
  3. RYTARY [Suspect]
     Active Substance: CARBIDOPA\LEVODOPA
     Dosage: 48.75/195MG, 3 CAPSULES, 4 /DAY
     Route: 048
     Dates: start: 20220121, end: 2022
  4. RYTARY [Suspect]
     Active Substance: CARBIDOPA\LEVODOPA
     Dosage: 48.75/195MG, 13 CAPSULES, DAILY, 3 CAPS AT 6AM, 12PM AND 6PM AND 2 CAPS AT 10PM AND 12AM
     Route: 048
  5. RYTARY [Suspect]
     Active Substance: CARBIDOPA\LEVODOPA
     Dosage: 48.75/195MG, 3 CAPSULES, 5X/DAY (AT 6AM, NOON, 6PM, 10PM, AND MIDNIGHT)
     Route: 048
     Dates: start: 20200428

REACTIONS (2)
  - Pain [Unknown]
  - Therapy cessation [Unknown]
